FAERS Safety Report 25668289 (Version 2)
Quarter: 2025Q3

REPORT INFORMATION
  Report Type: Report from Study
  Country: CA (occurrence: CA)
  Receive Date: 20250812
  Receipt Date: 20250905
  Transmission Date: 20251021
  Serious: Yes (Hospitalization)
  Sender: ROCHE
  Company Number: CA-ROCHE-10000340403

PATIENT
  Sex: Female

DRUGS (2)
  1. OCREVUS [Suspect]
     Active Substance: OCRELIZUMAB
     Indication: Relapsing-remitting multiple sclerosis
     Dosage: MORE DOSAGE INFORMATION IS  300MG AT DAY 0 AND DAY 14 AND THEN 600MG EVERY 6 MONTHS
     Route: 042
     Dates: start: 20200114
  2. OCREVUS [Suspect]
     Active Substance: OCRELIZUMAB
     Route: 042
     Dates: start: 20200115

REACTIONS (4)
  - Pain [Unknown]
  - Fatigue [Unknown]
  - Hypokinesia [Unknown]
  - Electric shock sensation [Unknown]
